FAERS Safety Report 13610818 (Version 1)
Quarter: 2017Q2

REPORT INFORMATION
  Report Type: Spontaneous
  Country: US (occurrence: US)
  Receive Date: 20170605
  Receipt Date: 20170605
  Transmission Date: 20170830
  Serious: Yes (Death, Hospitalization)
  Sender: FDA-Public Use
  Company Number: US-AUROBINDO-AUR-APL-2017-34904

PATIENT
  Age: 25 Year
  Sex: Female

DRUGS (1)
  1. NORTRIPTYLINE [Suspect]
     Active Substance: NORTRIPTYLINE
     Indication: SUICIDE ATTEMPT
     Dosage: 1200 MG, UNK
     Route: 048

REACTIONS (7)
  - Ventricular fibrillation [Fatal]
  - Overdose [Unknown]
  - Respiratory alkalosis [Unknown]
  - Respiratory rate decreased [Unknown]
  - Seizure [Unknown]
  - Ventricular tachycardia [Unknown]
  - Electrocardiogram QRS complex shortened [Unknown]
